FAERS Safety Report 5468219-9 (Version None)
Quarter: 2007Q3

REPORT INFORMATION
  Report Type: 
  Country: None (occurrence: None)
  Receive Date: 20070921
  Receipt Date: 20070914
  Transmission Date: 20080115
  Serious: Yes (Hospitalization)
  Sender: FDA-Public Use
  Company Number: 2007-04229

PATIENT
  Age: 3 Year
  Sex: Female

DRUGS (1)
  1. COLCHICUM JTL LIQ [Suspect]
     Indication: ACCIDENT
     Dosage: 20-25 TABLETS(0.9MG/KG)MAXIMALLY, ORAL
     Route: 048

REACTIONS (7)
  - ACCIDENTAL EXPOSURE [None]
  - ACCIDENTAL OVERDOSE [None]
  - DISSEMINATED INTRAVASCULAR COAGULATION [None]
  - DRUG TOXICITY [None]
  - LOSS OF CONSCIOUSNESS [None]
  - MULTI-ORGAN FAILURE [None]
  - PARTIAL SEIZURES [None]
